FAERS Safety Report 6812656-4 (Version None)
Quarter: 2010Q3

REPORT INFORMATION
  Report Type: 
  Country: None (occurrence: None)
  Receive Date: 20100701
  Receipt Date: 20100617
  Transmission Date: 20110219
  Serious: Yes (Death, Other)
  Sender: FDA-Public Use
  Company Number: GB-ROCHE-710165

PATIENT
  Sex: Female

DRUGS (3)
  1. PEGINTERFERON ALFA-2A [Suspect]
     Indication: HEPATITIS C
     Dosage: DOSE REPORTED AS 180 UNIT: NOT REPORTED.
     Route: 065
  2. RIBAVIRIN [Suspect]
     Indication: HEPATITIS C
     Dosage: DOSE 800 UNIT: NOT REPORTED.
     Route: 065
  3. METHADONE [Concomitant]

REACTIONS (2)
  - DEATH [None]
  - PNEUMONIA [None]
